FAERS Safety Report 12153866 (Version 3)
Quarter: 2016Q4

REPORT INFORMATION
  Report Type: Report from Study
  Country: US (occurrence: US)
  Receive Date: 20160307
  Receipt Date: 20161015
  Transmission Date: 20170207
  Serious: Yes (Other)
  Sender: FDA-Public Use
  Company Number: US-AMGEN-USASL2016027201

PATIENT
  Age: 60 Year
  Sex: Female

DRUGS (1)
  1. PROLIA [Suspect]
     Active Substance: DENOSUMAB
     Indication: OSTEOPOROSIS
     Dosage: UNK
     Route: 065

REACTIONS (11)
  - Dysstasia [Unknown]
  - Neuralgia [Unknown]
  - Foot fracture [Unknown]
  - Impaired healing [Recovered/Resolved]
  - Fall [Unknown]
  - Colon cancer [Unknown]
  - Bone loss [Unknown]
  - Multiple fractures [Unknown]
  - Forearm fracture [Unknown]
  - Joint range of motion decreased [Unknown]
  - Pain [Unknown]

NARRATIVE: CASE EVENT DATE: 20160522
